FAERS Safety Report 9435252 (Version 1)
Quarter: 2013Q3

REPORT INFORMATION
  Report Type: Report from Study
  Country: US (occurrence: US)
  Receive Date: 20130801
  Receipt Date: 20130801
  Transmission Date: 20140515
  Serious: Yes (Hospitalization)
  Sender: FDA-Public Use
  Company Number: US-ACTELION-A-NJ2013-83946

PATIENT
  Age: 70 Year
  Sex: Female

DRUGS (20)
  1. TRACLEER [Suspect]
     Indication: PULMONARY HYPERTENSION
     Dosage: 125 MG, BID
     Route: 048
     Dates: start: 201102
  2. TRACLEER [Suspect]
     Dosage: 62.5 MG, BID
     Route: 048
     Dates: start: 201101, end: 201102
  3. VENTAVIS [Suspect]
     Indication: PULMONARY HYPERTENSION
     Dosage: 6 TIMES DAILY
     Route: 055
     Dates: start: 20130524
  4. VENTAVIS [Suspect]
     Dosage: 6 TIMES DAILY
     Route: 055
     Dates: start: 20100710, end: 20130514
  5. PREDNISONE [Concomitant]
     Dosage: 20 MG, QD
     Dates: start: 20130701
  6. FUROSEMIDE [Concomitant]
     Dosage: 40 MG, QD
     Dates: start: 201011
  7. METOPROLOL [Concomitant]
     Dosage: 25 MG, QD
     Dates: start: 2011
  8. VERAPAMIL [Concomitant]
     Dosage: 80 MG, EVERY 8 HOURS
     Dates: start: 201305
  9. ROFLUMILAST [Concomitant]
     Dosage: 500 MCG, QD
     Dates: start: 201208
  10. SINGULAIR [Concomitant]
     Dosage: 10 MG, QD
     Dates: start: 2008
  11. PROTONIX [Concomitant]
     Dosage: 40 MG, BID
     Dates: start: 201305
  12. POTASSIUM [Concomitant]
     Dosage: 20 MEQ, QD
     Dates: start: 2011
  13. XARELTO [Concomitant]
     Dosage: 20 MG, QD
     Dates: start: 201305
  14. SPIRIVA [Concomitant]
     Dosage: 18 MCG, QD
     Dates: start: 2009
  15. ADVAIR [Concomitant]
     Dosage: 500/50 BID INHALER
     Dates: start: 2009
  16. XOPENEX [Concomitant]
     Dosage: 0.63 MG, Q6HRS
     Dates: start: 2010
  17. ZYRTEC-D [Concomitant]
     Dosage: 120 MG, BID
     Dates: start: 2010
  18. MUCINEX [Concomitant]
     Dosage: 600 MG, BID
     Dates: start: 2010
  19. CALCIUM [Concomitant]
     Dosage: 600 MG, TID
     Dates: start: 2006
  20. ICAPS [Concomitant]
     Dosage: 2 TABLETS, BID

REACTIONS (2)
  - Bronchitis [Recovered/Resolved]
  - Pneumonia [Recovering/Resolving]
